FAERS Safety Report 6856063-7 (Version None)
Quarter: 2010Q3

REPORT INFORMATION
  Report Type: 
  Country: None (occurrence: None)
  Receive Date: 20100715
  Receipt Date: 20100715
  Transmission Date: 20110219
  Serious: Yes (Hospitalization)
  Sender: FDA-Public Use
  Company Number: None

PATIENT
  Age: 15 Year
  Sex: Male
  Weight: 64.4108 kg

DRUGS (5)
  1. MALARONE [Suspect]
     Indication: MALARIA PROPHYLAXIS
     Dosage: 1 TABLET DAILY PO
     Route: 048
     Dates: start: 20100611, end: 20100625
  2. NEXIUM [Concomitant]
  3. CYPROHEPTADINE HCL [Concomitant]
  4. SERTRALINE HCL [Concomitant]
  5. AMITRIPTYLINE HYDROCHLORIDE [Concomitant]

REACTIONS (8)
  - ABNORMAL BEHAVIOUR [None]
  - AGGRESSION [None]
  - AMNESIA [None]
  - CIRCADIAN RHYTHM SLEEP DISORDER [None]
  - CRYING [None]
  - PSYCHOTIC DISORDER [None]
  - SUICIDAL IDEATION [None]
  - VERBAL ABUSE [None]
